FAERS Safety Report 7455604-9 (Version None)
Quarter: 2011Q2

REPORT INFORMATION
  Report Type: 
  Country: None (occurrence: None)
  Receive Date: 20110503
  Receipt Date: 20110420
  Transmission Date: 20111010
  Serious: Yes (Death)
  Sender: FDA-Public Use
  Company Number: DE-ROCHE-773887

PATIENT
  Sex: Female
  Weight: 78 kg

DRUGS (4)
  1. BEVACIZUMAB [Suspect]
     Dosage: 5 UNITS NOT REPORTED
     Route: 065
     Dates: start: 20101218, end: 20110324
  2. FOLINIC ACID [Concomitant]
     Dates: start: 20101218, end: 20110324
  3. IRINOTECAN [Concomitant]
     Dates: start: 20101218, end: 20110324
  4. FLUOROURACIL [Concomitant]
     Dates: start: 20101218, end: 20110324

REACTIONS (1)
  - NO THERAPEUTIC RESPONSE [None]
